FAERS Safety Report 9541812 (Version 1)
Quarter: 2013Q3

REPORT INFORMATION
  Report Type: Report from Study
  Country: AU (occurrence: AU)
  Receive Date: 20130923
  Receipt Date: 20130923
  Transmission Date: 20140515
  Serious: Yes (Hospitalization, Other)
  Sender: FDA-Public Use
  Company Number: PHHY2013AU104242

PATIENT
  Age: 36 Year
  Sex: Male

DRUGS (4)
  1. SOM230 [Suspect]
     Indication: PITUITARY-DEPENDENT CUSHING^S SYNDROME
     Dosage: 600 UG, BID
     Route: 058
     Dates: start: 20130415, end: 20130906
  2. TEMOZOLOMIDE [Concomitant]
     Dosage: UNK
     Dates: start: 201210, end: 20130906
  3. DIABEX [Concomitant]
     Dosage: UNK
     Dates: start: 201306, end: 20130906
  4. JANUVIA [Concomitant]
     Dosage: UNK
     Dates: start: 201307, end: 20130906

REACTIONS (2)
  - Diabetes mellitus [Recovered/Resolved]
  - Diarrhoea [Recovered/Resolved]
